FAERS Safety Report 6538041-0 (Version None)
Quarter: 2010Q1

REPORT INFORMATION
  Report Type: 
  Country: None (occurrence: None)
  Receive Date: 20100114
  Receipt Date: 20100106
  Transmission Date: 20100710
  Serious: Yes (Other)
  Sender: FDA-Public Use
  Company Number: NL-ASTRAZENECA-2010SE00530

PATIENT
  Sex: Female

DRUGS (1)
  1. ATACAND [Suspect]
     Indication: MIGRAINE
     Route: 048

REACTIONS (1)
  - INSOMNIA [None]
